FAERS Safety Report 9399783 (Version 2)
Quarter: 2013Q3

REPORT INFORMATION
  Report Type: Report from Study
  Country: AR (occurrence: AR)
  Receive Date: 20130715
  Receipt Date: 20130920
  Transmission Date: 20140515
  Serious: Yes (Hospitalization)
  Sender: FDA-Public Use
  Company Number: PHHY2013AR074265

PATIENT
  Sex: Female

DRUGS (2)
  1. DIOVAN [Suspect]
     Indication: HYPERTENSION
     Dosage: 80 MG, UNK
     Dates: start: 2012, end: 201306
  2. DIOVAN [Suspect]
     Dosage: 2 UKN (160MG), BID (ONE IN THE MORNING AND OTHER AT NIGHT)

REACTIONS (2)
  - Hip fracture [Recovered/Resolved]
  - Musculoskeletal pain [Recovering/Resolving]
